FAERS Safety Report 4285144-X (Version None)
Quarter: 2004Q1

REPORT INFORMATION
  Report Type: 
  Country: None (occurrence: None)
  Receive Date: 20040202
  Receipt Date: 20040116
  Transmission Date: 20041129
  Serious: Yes (Other)
  Sender: FDA-Public Use
  Company Number: 204243

PATIENT
  Age: 12 Year
  Sex: Male

DRUGS (1)
  1. NUTROPIN [Suspect]
     Indication: RENAL FAILURE CHRONIC
     Dates: start: 19960101

REACTIONS (1)
  - BONE SARCOMA [None]
